FAERS Safety Report 15776234 (Version 1)
Quarter: 2018Q4

REPORT INFORMATION
  Report Type: Spontaneous
  Country: US (occurrence: US)
  Receive Date: 20181228
  Receipt Date: 20181228
  Transmission Date: 20190205
  Serious: Yes (Hospitalization)
  Sender: FDA-Public Use
  Company Number: None

PATIENT
  Sex: Female

DRUGS (18)
  1. OMEPRAZOLE. [Concomitant]
     Active Substance: OMEPRAZOLE
  2. SYMBICORT [Concomitant]
     Active Substance: BUDESONIDE\FORMOTEROL FUMARATE DIHYDRATE
  3. DICLOFENAC [Concomitant]
     Active Substance: DICLOFENAC
  4. ASPIRIN. [Concomitant]
     Active Substance: ASPIRIN
  5. AZITHROMYCIN ANHYDROUS. [Concomitant]
     Active Substance: AZITHROMYCIN ANHYDROUS
  6. LOSARTAN POT [Concomitant]
     Active Substance: LOSARTAN POTASSIUM
  7. PROVENTIL [Concomitant]
     Active Substance: ALBUTEROL
  8. DIAZEPAM. [Concomitant]
     Active Substance: DIAZEPAM
  9. BUPROPION. [Concomitant]
     Active Substance: BUPROPION
  10. GABAPENTIN. [Concomitant]
     Active Substance: GABAPENTIN
  11. NYSTATIN. [Concomitant]
     Active Substance: NYSTATIN
  12. PREDNISONE. [Concomitant]
     Active Substance: PREDNISONE
  13. ESBRIET [Suspect]
     Active Substance: PIRFENIDONE
     Indication: IDIOPATHIC PULMONARY FIBROSIS
     Route: 048
     Dates: start: 20181005
  14. PROPRANOLOL [Concomitant]
     Active Substance: PROPRANOLOL HYDROCHLORIDE
  15. PRAVASTATIN. [Concomitant]
     Active Substance: PRAVASTATIN
  16. RAMIPRIL. [Concomitant]
     Active Substance: RAMIPRIL
  17. HYDROCO/APAP [Concomitant]
     Active Substance: ACETAMINOPHEN\HYDROCODONE
  18. SERTRALINE [Concomitant]
     Active Substance: SERTRALINE HYDROCHLORIDE

REACTIONS (2)
  - Fungal infection [None]
  - Pneumonia [None]
